FAERS Safety Report 7626160-7 (Version None)
Quarter: 2011Q3

REPORT INFORMATION
  Report Type: 
  Country: None (occurrence: None)
  Receive Date: 20110721
  Receipt Date: 20110706
  Transmission Date: 20111222
  Serious: No
  Sender: FDA-Public Use
  Company Number: PHHY2011US56317

PATIENT

DRUGS (2)
  1. FANAPT [Suspect]
  2. CLOZAPINE [Suspect]

REACTIONS (1)
  - NO ADVERSE EVENT [None]
